FAERS Safety Report 13383704 (Version 2)
Quarter: 2017Q2

REPORT INFORMATION
  Report Type: Spontaneous
  Country: US (occurrence: US)
  Receive Date: 20170329
  Receipt Date: 20170630
  Transmission Date: 20170830
  Serious: No
  Sender: FDA-Public Use
  Company Number: US-BAYER-2017-059925

PATIENT
  Age: 44 Year
  Sex: Female

DRUGS (2)
  1. BETASERON [Suspect]
     Active Substance: INTERFERON BETA-1B
     Indication: MULTIPLE SCLEROSIS
     Dosage: 0.25 ML, QOD
     Route: 058
  2. BETASERON [Suspect]
     Active Substance: INTERFERON BETA-1B
     Indication: MULTIPLE SCLEROSIS
     Dosage: 0.25 MG, UNK
     Route: 058
     Dates: start: 20161007

REACTIONS (2)
  - Influenza like illness [Unknown]
  - Headache [Unknown]
